FAERS Safety Report 20578465 (Version 1)
Quarter: 2022Q1

REPORT INFORMATION
  Report Type: Spontaneous
  Country: US (occurrence: None)
  Receive Date: 20220310
  Receipt Date: 20220310
  Transmission Date: 20220423
  Serious: No
  Sender: FDA-Public Use
  Company Number: US-PLXPHARMA-2021-PLX-00023

PATIENT
  Age: 74 Year
  Sex: Male
  Weight: 108.86 kg

DRUGS (1)
  1. VAZALORE [Suspect]
     Active Substance: ASPIRIN
     Indication: Pain
     Route: 048
     Dates: start: 202111

REACTIONS (2)
  - Choking [Recovered/Resolved]
  - Foreign body in gastrointestinal tract [Recovered/Resolved]

NARRATIVE: CASE EVENT DATE: 20211101
